FAERS Safety Report 8763822 (Version 1)
Quarter: 2012Q4

REPORT INFORMATION
  Report Type: Spontaneous
  Country: US (occurrence: None)
  Receive Date: 20120831
  Receipt Date: 20120831
  Transmission Date: 20130627
  Serious: Yes (Hospitalization, Disabling)
  Sender: FDA-Public Use
  Company Number: None

PATIENT
  Age: 61 Year
  Sex: Female
  Weight: 58.97 kg

DRUGS (1)
  1. SUBOXONE FILM [Suspect]
     Route: 060
     Dates: start: 20050102, end: 20070102

REACTIONS (2)
  - Drug dependence [None]
  - Drug withdrawal syndrome [None]
